FAERS Safety Report 5476426-4 (Version None)
Quarter: 2007Q4

REPORT INFORMATION
  Report Type: 
  Country: None (occurrence: None)
  Receive Date: 20071003
  Receipt Date: 20070925
  Transmission Date: 20080405
  Serious: Yes (Other)
  Sender: FDA-Public Use
  Company Number: GB-PFIZER INC-2007080532

PATIENT
  Age: 36 Year
  Sex: Female
  Weight: 97 kg

DRUGS (4)
  1. VARENICLINE TABLETS [Suspect]
     Indication: SMOKING CESSATION THERAPY
     Route: 048
  2. DICLOFENAC SODIUM [Concomitant]
     Indication: PERIARTHRITIS
     Route: 048
  3. ALL OTHER THERAPEUTIC PRODUCTS [Concomitant]
     Indication: EPILEPSY
     Route: 048
  4. SUMATRIPTAN SUCCINATE [Concomitant]
     Indication: PERIARTHRITIS
     Dosage: TEXT:1 DOSE FORM

REACTIONS (1)
  - MENORRHAGIA [None]
